FAERS Safety Report 6682635-9 (Version None)
Quarter: 2010Q2

REPORT INFORMATION
  Report Type: 
  Country: None (occurrence: None)
  Receive Date: 20100415
  Receipt Date: 20100406
  Transmission Date: 20101027
  Serious: Yes (Hospitalization)
  Sender: FDA-Public Use
  Company Number: PHHY2010AU19118

PATIENT
  Sex: Male

DRUGS (2)
  1. CLOZARIL [Suspect]
     Dosage: 12.5 MG, UNK
     Dates: start: 19971114, end: 20100323
  2. ANTIPSYCHOTICS [Concomitant]

REACTIONS (6)
  - BACTERAEMIA [None]
  - CARDIAC DISORDER [None]
  - CHOLANGITIS [None]
  - LIVER FUNCTION TEST ABNORMAL [None]
  - PYREXIA [None]
  - TROPONIN INCREASED [None]
